FAERS Safety Report 24632964 (Version 1)
Quarter: 2024Q4

REPORT INFORMATION
  Report Type: Spontaneous
  Country: US (occurrence: US)
  Receive Date: 20241118
  Receipt Date: 20241118
  Transmission Date: 20250114
  Serious: No
  Sender: PRASCO
  Company Number: US-Prasco Laboratories-PRAS20241251

PATIENT
  Age: 66 Year
  Sex: Female

DRUGS (1)
  1. ESTRADIOL [Suspect]
     Active Substance: ESTRADIOL
     Indication: Product used for unknown indication
     Dosage: ONE APPLICATOR FULL
     Route: 067

REACTIONS (3)
  - Dysgeusia [Not Recovered/Not Resolved]
  - Tongue coated [Not Recovered/Not Resolved]
  - Off label use [None]

NARRATIVE: CASE EVENT DATE: 20241115
